FAERS Safety Report 10262197 (Version 1)
Quarter: 2014Q2

REPORT INFORMATION
  Report Type: Spontaneous
  Country: SE (occurrence: SE)
  Receive Date: 20140626
  Receipt Date: 20140626
  Transmission Date: 20141212
  Serious: Yes (Death)
  Sender: FDA-Public Use
  Company Number: SE-BAXTER-2014BAX033351

PATIENT
  Sex: Male

DRUGS (1)
  1. PHYSIONEAL 40 GLUCOSE 22,7 MG/ML (2,27% W/V) CLEAR-FLEX, PERITONEALDIA [Suspect]
     Indication: PERITONEAL DIALYSIS
     Route: 033

REACTIONS (1)
  - Death [Fatal]
